FAERS Safety Report 4876228-3 (Version None)
Quarter: 2005Q4

REPORT INFORMATION
  Report Type: 
  Country: None (occurrence: None)
  Receive Date: 20051205
  Receipt Date: 20050805
  Transmission Date: 20060501
  Serious: Yes (Other)
  Sender: FDA-Public Use
  Company Number: USA0507104100

PATIENT
  Age: 66 Year
  Sex: Male

DRUGS (12)
  1. ALIMTA [Suspect]
     Indication: LUNG NEOPLASM
     Dates: start: 20050101
  2. CARBOPLATIN [Concomitant]
  3. ZETIA [Concomitant]
  4. ZOCOR [Concomitant]
  5. FOLIC ACID [Concomitant]
  6. DEXAMETHASONE TAB [Concomitant]
  7. VITAMIN B-12 [Concomitant]
  8. MULTI-VITAMIN [Concomitant]
  9. LASIX [Concomitant]
  10. COUMADIN [Concomitant]
  11. POTASSIUM [Concomitant]
  12. OXYGEN [Concomitant]

REACTIONS (9)
  - ANGER [None]
  - ASTHENIA [None]
  - FATIGUE [None]
  - IRRITABILITY [None]
  - MALIGNANT NEOPLASM PROGRESSION [None]
  - PAIN [None]
  - RASH [None]
  - SOCIAL AVOIDANT BEHAVIOUR [None]
  - WEIGHT INCREASED [None]
